FAERS Safety Report 16862675 (Version 1)
Quarter: 2019Q3

REPORT INFORMATION
  Report Type: Spontaneous
  Country: US (occurrence: US)
  Receive Date: 20190927
  Receipt Date: 20190927
  Transmission Date: 20191005
  Serious: No
  Sender: FDA-Public Use
  Company Number: US-SUNOVION-2019SUN003917

PATIENT
  Age: 22 Year
  Sex: Female
  Weight: 68 kg

DRUGS (6)
  1. LATUDA [Suspect]
     Active Substance: LURASIDONE HYDROCHLORIDE
     Dosage: TWO 20MG TABS DAILY
     Route: 048
     Dates: start: 20190909, end: 20190915
  2. LATUDA [Suspect]
     Active Substance: LURASIDONE HYDROCHLORIDE
     Indication: BIPOLAR DISORDER
     Dosage: 20MG TAB + 1/2 20MG TAB
     Route: 048
     Dates: start: 20190916
  3. LATUDA [Suspect]
     Active Substance: LURASIDONE HYDROCHLORIDE
     Dosage: 20 MG, QD
     Route: 048
     Dates: start: 2019, end: 20190909
  4. LITHIUM. [Concomitant]
     Active Substance: LITHIUM
     Indication: MOOD ALTERED
     Dosage: 900 MG, QD
  5. EFFEXOR [Concomitant]
     Active Substance: VENLAFAXINE HYDROCHLORIDE
     Indication: DEPRESSION
     Dosage: 150 MG, QD
     Dates: start: 20190909
  6. EFFEXOR [Concomitant]
     Active Substance: VENLAFAXINE HYDROCHLORIDE
     Dosage: 75 MG, QD
     Dates: start: 20190909

REACTIONS (4)
  - Intentional product misuse [Unknown]
  - Wrong technique in product usage process [Unknown]
  - Anxiety [Unknown]
  - Blepharospasm [Not Recovered/Not Resolved]

NARRATIVE: CASE EVENT DATE: 201909
